FAERS Safety Report 7611709-0 (Version None)
Quarter: 2011Q2

REPORT INFORMATION
  Report Type: 
  Country: None (occurrence: None)
  Receive Date: 20110627
  Receipt Date: 20110621
  Transmission Date: 20111010
  Serious: Yes (Other)
  Sender: FDA-Public Use
  Company Number: 2011028856

PATIENT
  Age: 48 Year
  Sex: Male
  Weight: 72.1219 kg

DRUGS (8)
  1. HIZENTRA [Suspect]
  2. HIZENTRA [Suspect]
  3. HIZENTRA [Suspect]
  4. HIZENTRA [Suspect]
     Indication: IMMUNODEFICIENCY COMMON VARIABLE
     Dosage: (5 G 1X/WEEK, INFUSED 25ML VIA 1-3 SITES OVER 1HR 42MIN SUBCUTANEOUS)
     Route: 058
     Dates: start: 20110601
  5. HIZENTRA [Suspect]
     Indication: IMMUNODEFICIENCY COMMON VARIABLE
     Dosage: (5 G 1X/WEEK, INFUSED 25ML VIA 1-3 SITES OVER 1HR 42MIN SUBCUTANEOUS)
     Route: 058
     Dates: start: 20110301
  6. HIZENTRA [Suspect]
     Indication: IMMUNODEFICIENCY COMMON VARIABLE
     Dosage: (5 G 1X/WEEK, INFUSED 25ML VIA 1-3 SITES OVER 1HR 42MIN SUBCUTANEOUS)
     Route: 058
     Dates: start: 20110601
  7. HIZENTRA [Suspect]
     Indication: IMMUNODEFICIENCY COMMON VARIABLE
     Dosage: (5 G 1X/WEEK, INFUSED 25ML VIA 1-3 SITES OVER 1HR 42MIN SUBCUTANEOUS)
     Route: 058
     Dates: start: 20110218
  8. HIZENTRA [Suspect]
     Indication: IMMUNODEFICIENCY COMMON VARIABLE
     Dosage: (5 G 1X/WEEK, INFUSED 25ML VIA 1-3 SITES OVER 1HR 42MIN SUBCUTANEOUS)
     Route: 058
     Dates: start: 20110301

REACTIONS (7)
  - FATIGUE [None]
  - INFUSION SITE PAIN [None]
  - BRONCHITIS CHRONIC [None]
  - DRUG INEFFECTIVE [None]
  - DEVICE BREAKAGE [None]
  - INFUSION SITE MASS [None]
  - RESPIRATORY TRACT INFECTION [None]
